FAERS Safety Report 9094098 (Version 1)
Quarter: 2013Q1

REPORT INFORMATION
  Report Type: Spontaneous
  Country: US (occurrence: None)
  Receive Date: 20130122
  Receipt Date: 20130122
  Transmission Date: 20140127
  Serious: Yes (Other)
  Sender: FDA-Public Use
  Company Number: TPA2012A08280

PATIENT
  Age: 56 Year
  Sex: Male
  Weight: 120.2 kg

DRUGS (5)
  1. ACTOS (PIOGLITAZONE HYDROCHLORIDE) [Suspect]
     Dates: start: 2000, end: 201208
  2. METFORMIN (METFORMIN) [Concomitant]
  3. GLUCOPHAGE (METFORMIN HYDROCHLORIDE) [Concomitant]
  4. STARLIX (NATEGLINIDE) TABLET [Concomitant]
  5. GLUCOTROL (GLIPIZIDE) [Concomitant]

REACTIONS (4)
  - Bladder cancer [None]
  - Calculus bladder [None]
  - Renal disorder [None]
  - Lymphoedema [None]
